FAERS Safety Report 10425071 (Version 1)
Quarter: 2014Q3

REPORT INFORMATION
  Report Type: Spontaneous
  Country: US (occurrence: US)
  Receive Date: 20140902
  Receipt Date: 20140902
  Transmission Date: 20150326
  Serious: Yes (Hospitalization)
  Sender: FDA-Public Use
  Company Number: US-GLAXOSMITHKLINE-A1087140A

PATIENT
  Age: 22 Month
  Sex: Male

DRUGS (2)
  1. SERETIDE [Suspect]
     Active Substance: FLUTICASONE FUROATE\SALMETEROL XINAFOATE
     Indication: PNEUMONIA
     Route: 065
     Dates: start: 201404
  2. AEROLIN [Suspect]
     Active Substance: ALBUTEROL
     Indication: PNEUMONIA
     Dosage: 3UNIT SIX TIMES PER DAY
     Route: 065
     Dates: start: 201307

REACTIONS (5)
  - Off label use [Not Recovered/Not Resolved]
  - Obstructive airways disorder [Not Recovered/Not Resolved]
  - Atelectasis [Unknown]
  - Drug ineffective [Not Recovered/Not Resolved]
  - Malaise [Unknown]

NARRATIVE: CASE EVENT DATE: 201404
